FAERS Safety Report 11049449 (Version 1)
Quarter: 2015Q2

REPORT INFORMATION
  Report Type: Spontaneous
  Country: US (occurrence: US)
  Receive Date: 20150420
  Receipt Date: 20150420
  Transmission Date: 20150821
  Serious: Yes (Other)
  Sender: FDA-Public Use
  Company Number: US-ENDO PHARMACEUTICALS INC.-2015-000396

PATIENT
  Age: 7 Year
  Sex: Female
  Weight: 19.52 kg

DRUGS (2)
  1. CLONIDINE HCL TABLETS 0.1MG [Suspect]
     Active Substance: CLONIDINE HYDROCHLORIDE
     Indication: PRODUCT USED FOR UNKNOWN INDICATION
     Route: 065
     Dates: start: 2014, end: 2015
  2. CLONIDINE HCL TABLETS 0.1MG [Suspect]
     Active Substance: CLONIDINE HYDROCHLORIDE
     Route: 065
     Dates: start: 2015

REACTIONS (6)
  - Suicidal ideation [Recovered/Resolved]
  - Self injurious behaviour [Recovered/Resolved]
  - Contusion [Unknown]
  - Precocious puberty [Not Recovered/Not Resolved]
  - Product use issue [Not Recovered/Not Resolved]
  - Urticaria [Unknown]

NARRATIVE: CASE EVENT DATE: 2014
